FAERS Safety Report 8593412 (Version 2)
Quarter: 2013Q3

REPORT INFORMATION
  Report Type: Spontaneous
  Country: US (occurrence: US)
  Receive Date: 20120604
  Receipt Date: 20130723
  Transmission Date: 20140515
  Serious: Yes (Disabling)
  Sender: FDA-Public Use
  Company Number: US-ASTRAZENECA-2012SE34860

PATIENT
  Age: 77 Year
  Sex: Female

DRUGS (7)
  1. NEXIUM [Suspect]
     Indication: REGURGITATION
     Dosage: ONCE A DAY AT NIGHT
     Route: 048
  2. NEXIUM [Suspect]
     Indication: GASTROOESOPHAGEAL REFLUX DISEASE
     Dosage: ONCE A DAY AT NIGHT
     Route: 048
  3. ZANTAC [Concomitant]
  4. ALKA SELTZER [Concomitant]
     Indication: ABDOMINAL DISCOMFORT
  5. LISINOPRIL [Concomitant]
     Indication: BLOOD PRESSURE ABNORMAL
  6. ALBUTEROL [Concomitant]
     Indication: ASTHMA
  7. FLOVENT [Concomitant]
     Indication: ASTHMA

REACTIONS (7)
  - Arthritis [Unknown]
  - Osteoporosis [Unknown]
  - Multiple fractures [Unknown]
  - Musculoskeletal discomfort [Unknown]
  - Muscle spasms [Unknown]
  - Peripheral nerve lesion [Unknown]
  - Arthralgia [Unknown]
